FAERS Safety Report 17085018 (Version 2)
Quarter: 2020Q2

REPORT INFORMATION
  Report Type: Report from Study
  Country: None (occurrence: AU)
  Receive Date: 20191127
  Receipt Date: 20200609
  Transmission Date: 20200713
  Serious: Yes (Other)
  Sender: FDA-Public Use
  Company Number: AU-ABBVIE-19K-008-3168335-00

PATIENT

DRUGS (3)
  1. HUMIRA [Suspect]
     Active Substance: ADALIMUMAB
     Route: 058
  2. HUMIRA [Suspect]
     Active Substance: ADALIMUMAB
     Indication: CROHN^S DISEASE
     Route: 058
  3. METHOTREXATE. [Suspect]
     Active Substance: METHOTREXATE
     Indication: CROHN^S DISEASE
     Dosage: FOR 6 MONTHS
     Route: 048

REACTIONS (5)
  - Drug level abnormal [Recovering/Resolving]
  - Gastrointestinal wall thickening [Unknown]
  - Crohn^s disease [Not Recovered/Not Resolved]
  - C-reactive protein abnormal [Recovering/Resolving]
  - Colitis [Unknown]
